FAERS Safety Report 7591418-7 (Version None)
Quarter: 2011Q2

REPORT INFORMATION
  Report Type: 
  Country: None (occurrence: None)
  Receive Date: 20110630
  Receipt Date: 20110630
  Transmission Date: 20111010
  Serious: Yes (Death, Other)
  Sender: FDA-Public Use
  Company Number: None

PATIENT
  Age: 62 Year
  Sex: Female

DRUGS (1)
  1. HYLAND'S LEG CRAMPS WITH  HYLANDS [Suspect]
     Indication: MUSCLE SPASMS
     Dosage: CINCHONA OFF. 3X HPUS QUININE 2-3 TABLETS/4 HRS. PO
     Route: 048
     Dates: start: 20090601, end: 20091223

REACTIONS (2)
  - OFF LABEL USE [None]
  - THROMBOTIC THROMBOCYTOPENIC PURPURA [None]
